FAERS Safety Report 9337013 (Version 1)
Quarter: 2013Q2

REPORT INFORMATION
  Report Type: Spontaneous
  Country: US (occurrence: US)
  Receive Date: 20130607
  Receipt Date: 20130607
  Transmission Date: 20140414
  Serious: Yes (Death)
  Sender: FDA-Public Use
  Company Number: US-TEVA-409394USA

PATIENT
  Age: 41 Year
  Sex: Male

DRUGS (2)
  1. PROAIR HFA [Suspect]
  2. QVAR [Suspect]

REACTIONS (1)
  - Death [Fatal]
